FAERS Safety Report 13452630 (Version 2)
Quarter: 2017Q2

REPORT INFORMATION
  Report Type: Report from Study
  Country: US (occurrence: US)
  Receive Date: 20170418
  Receipt Date: 20170419
  Transmission Date: 20170830
  Serious: Yes (Other)
  Sender: FDA-Public Use
  Company Number: US-PFIZER INC-2017169170

PATIENT
  Age: 77 Year
  Sex: Male

DRUGS (1)
  1. NELFINAVIR MESILATE [Suspect]
     Active Substance: NELFINAVIR MESYLATE
     Indication: ADENOID CYSTIC CARCINOMA
     Dosage: 1250 MG, 2X/DAY

REACTIONS (1)
  - Hyponatraemia [Unknown]
